FAERS Safety Report 24791534 (Version 1)
Quarter: 2024Q4

REPORT INFORMATION
  Report Type: Report from Study
  Country: AT (occurrence: AT)
  Receive Date: 20241231
  Receipt Date: 20241231
  Transmission Date: 20250115
  Serious: Yes (Death, Hospitalization, Other)
  Sender: ABBVIE
  Company Number: AT-ABBVIE-5833158

PATIENT
  Age: 66 Year
  Sex: Female

DRUGS (6)
  1. HUMIRA [Suspect]
     Active Substance: ADALIMUMAB
     Indication: Crohn^s disease
     Dosage: DURATION TEXT: ABOUT 12-15 YEARS
     Route: 058
     Dates: end: 2024
  2. SKYRIZI [Suspect]
     Active Substance: RISANKIZUMAB-RZAA
     Indication: Crohn^s disease
     Route: 058
     Dates: start: 2024
  3. PANTOPRAZOLE SODIUM [Concomitant]
     Active Substance: PANTOPRAZOLE SODIUM
     Indication: Gastrointestinal disorder prophylaxis
  4. DULOXETINE [Concomitant]
     Active Substance: DULOXETINE
     Indication: Product used for unknown indication
  5. ELIQUIS [Concomitant]
     Active Substance: APIXABAN
     Indication: Anticoagulant therapy
  6. LEVOTHYROXINE SODIUM [Concomitant]
     Active Substance: LEVOTHYROXINE SODIUM
     Indication: Hypothyroidism

REACTIONS (8)
  - Death [Fatal]
  - Brain oedema [Unknown]
  - Aphasia [Unknown]
  - Confusional state [Recovered/Resolved]
  - Epilepsy [Not Recovered/Not Resolved]
  - Metastases to central nervous system [Not Recovered/Not Resolved]
  - Thrombosis [Unknown]
  - Small cell lung cancer metastatic [Unknown]

NARRATIVE: CASE EVENT DATE: 20240101
